FAERS Safety Report 7358380-3 (Version None)
Quarter: 2011Q1

REPORT INFORMATION
  Report Type: 
  Country: None (occurrence: None)
  Receive Date: 20110307
  Receipt Date: 20100212
  Transmission Date: 20110831
  Serious: No
  Sender: FDA-Public Use
  Company Number: AEUSA201000048

PATIENT
  Age: 36 Year
  Sex: Female
  Weight: 56.6996 kg

DRUGS (11)
  1. PROLASTIN [Suspect]
     Indication: ALPHA-1 ANTI-TRYPSIN DEFICIENCY
     Dosage: 3546 MG;QW;IV
     Route: 042
     Dates: start: 20070201, end: 20100201
  2. ACETAMINOPHEN [Concomitant]
  3. XANAX [Concomitant]
  4. COREG [Concomitant]
  5. SINGULAIR [Concomitant]
  6. HEPARIN SODIUM [Concomitant]
  7. PROLASTIN-C [Suspect]
     Indication: ALPHA-1 ANTI-TRYPSIN DEFICIENCY
     Dosage: 3456 MG;QW;IV
     Route: 042
     Dates: start: 20100208
  8. CARDIAZEM /00489702/ [Concomitant]
  9. CYMBALTA [Concomitant]
  10. TEMAZEPAM [Concomitant]
  11. ADVAIR DISKUS 100/50 [Concomitant]

REACTIONS (8)
  - THINKING ABNORMAL [None]
  - BLOOD GLUCOSE DECREASED [None]
  - PYREXIA [None]
  - HYPERHIDROSIS [None]
  - FEELING ABNORMAL [None]
  - HEADACHE [None]
  - NECK PAIN [None]
  - BLOOD PRESSURE DECREASED [None]
